FAERS Safety Report 5764186-9 (Version None)
Quarter: 2008Q2

REPORT INFORMATION
  Report Type: 
  Country: None (occurrence: None)
  Receive Date: 20080610
  Receipt Date: 20080602
  Transmission Date: 20081010
  Serious: Yes (Other)
  Sender: FDA-Public Use
  Company Number: US-AMGEN-KDL277601

PATIENT
  Sex: Male

DRUGS (17)
  1. ARANESP [Suspect]
     Indication: ANAEMIA OF MALIGNANT DISEASE
  2. NEUPOGEN [Concomitant]
     Indication: NEUTROPENIA
     Route: 058
  3. CYCLOSPORINE [Concomitant]
  4. COUMADIN [Concomitant]
  5. FOSCARNET SODIUM [Concomitant]
  6. ACYCLOVIR SODIUM [Concomitant]
  7. PENICILLIN V POTASSIUM [Concomitant]
  8. PENTAMIDINE [Concomitant]
  9. NYSTATIN [Concomitant]
  10. AMLODIPINE [Concomitant]
  11. ENALAPRIL MALEATE [Concomitant]
  12. CELEXA [Concomitant]
  13. FLOMAX [Concomitant]
  14. DETROL [Concomitant]
  15. LUMIGAN [Concomitant]
  16. MAGNESIUM [Concomitant]
  17. VITAMIN CAP [Concomitant]

REACTIONS (2)
  - ANTI-ERYTHROPOIETIN ANTIBODY POSITIVE [None]
  - THERAPEUTIC RESPONSE DECREASED [None]
